FAERS Safety Report 9460237 (Version 2)
Quarter: 2013Q3

REPORT INFORMATION
  Report Type: Spontaneous
  Country: US (occurrence: US)
  Receive Date: 20130815
  Receipt Date: 20130904
  Transmission Date: 20140515
  Serious: Yes (Other)
  Sender: FDA-Public Use
  Company Number: US-TEVA-425901USA

PATIENT
  Sex: Female

DRUGS (1)
  1. CLONAZEPAM [Suspect]

REACTIONS (2)
  - Coeliac disease [Unknown]
  - Irritable bowel syndrome [Unknown]
